FAERS Safety Report 21784413 (Version 1)
Quarter: 2022Q4

REPORT INFORMATION
  Report Type: Report from Study
  Country: US (occurrence: US)
  Receive Date: 20221227
  Receipt Date: 20221227
  Transmission Date: 20230113
  Serious: No
  Sender: FDA-Public Use
  Company Number: US-ABBVIE-4211195

PATIENT
  Sex: Female

DRUGS (1)
  1. HUMIRA [Suspect]
     Active Substance: ADALIMUMAB
     Indication: Crohn^s disease
     Dosage: FORM STRENGTH 40 MG, THE ONSET DATE FOR EVENT DIZZINESS AND NAUSEOUS WAS NOV 2022.
     Route: 058
     Dates: start: 20221121

REACTIONS (3)
  - Dizziness [Not Recovered/Not Resolved]
  - Nausea [Unknown]
  - Fear of injection [Unknown]
